FAERS Safety Report 8026787-7 (Version None)
Quarter: 2012Q1

REPORT INFORMATION
  Report Type: 
  Country: None (occurrence: None)
  Receive Date: 20120106
  Receipt Date: 20111230
  Transmission Date: 20120608
  Serious: Yes (Other)
  Sender: FDA-Public Use
  Company Number: US-BAYER-2012-000335

PATIENT
  Age: 41 Year
  Sex: Female

DRUGS (2)
  1. MAGNEVIST [Suspect]
     Indication: MYELITIS TRANSVERSE
  2. MAGNEVIST [Suspect]
     Indication: NUCLEAR MAGNETIC RESONANCE IMAGING
     Dosage: 15 ML, ONCE
     Dates: start: 20111223

REACTIONS (2)
  - URTICARIA [None]
  - THROAT TIGHTNESS [None]
